FAERS Safety Report 4796350-X (Version None)
Quarter: 2005Q4

REPORT INFORMATION
  Report Type: 
  Country: None (occurrence: None)
  Receive Date: 20051007
  Receipt Date: 20050928
  Transmission Date: 20060501
  Serious: Yes (Hospitalization, Other)
  Sender: FDA-Public Use
  Company Number: HQWYE767530SEP05

PATIENT
  Age: 13 Year
  Sex: Male

DRUGS (1)
  1. ADVIL [Suspect]
     Indication: PAIN IN EXTREMITY
     Dosage: 200 MG 4X PER 1 DAY; ORAL
     Route: 048
     Dates: start: 20041019, end: 20041107

REACTIONS (1)
  - ERYSIPELAS [None]
